FAERS Safety Report 4902939-7 (Version None)
Quarter: 2006Q1

REPORT INFORMATION
  Report Type: 
  Country: None (occurrence: None)
  Receive Date: 20060207
  Receipt Date: 20060124
  Transmission Date: 20060701
  Serious: Yes (Hospitalization)
  Sender: FDA-Public Use
  Company Number: PHHO2006US01558

PATIENT
  Age: 33 Year
  Sex: Male

DRUGS (30)
  1. CYCLOSPORINE [Suspect]
     Indication: RENAL TRANSPLANT
     Dosage: 200 MG, BID
     Route: 048
  2. MYCOPHENOLATE MOFETIL [Suspect]
     Indication: RENAL TRANSPLANT
     Dosage: 1000 MG, BID
     Route: 048
  3. PREDNISONE [Suspect]
     Indication: RENAL TRANSPLANT
     Dosage: 20 MG, QD
  4. NIFEDIPINE [Concomitant]
  5. PANTOPRAZOLE [Concomitant]
  6. SULFAMETHOXAZOLE + TRIMETHOPRIM [Concomitant]
  7. ALLOPURINOL [Concomitant]
  8. ASPIRIN [Concomitant]
  9. CALCITRIOL [Concomitant]
  10. CALCIUM GLUCONATE [Concomitant]
  11. FERROUS SULFATE TAB [Concomitant]
  12. FLUCONAZOLE [Concomitant]
  13. MAGNESIUM OXIDE [Concomitant]
  14. MULTI-VITAMIN [Concomitant]
  15. AMBIEN [Concomitant]
  16. ALBUMIN (HUMAN) [Concomitant]
  17. VALCYTE [Concomitant]
  18. BACTRIM [Concomitant]
  19. HEPARIN [Concomitant]
  20. SEVELAMER [Concomitant]
  21. SODIUM BICARBONATE [Concomitant]
  22. PROCARDIA [Concomitant]
  23. PROTONIX [Concomitant]
  24. LABETALOL HCL [Concomitant]
  25. FENTANYL [Concomitant]
  26. SENNOSIDES A+B [Concomitant]
  27. CALCIUM GLUCONATE [Concomitant]
  28. ACETAMINOPHEN AND HYDROCODONE BITARTRATE [Concomitant]
  29. DIFLUCAN [Concomitant]
  30. CALCIUM ACETATE [Concomitant]

REACTIONS (12)
  - COMPLICATIONS OF TRANSPLANTED KIDNEY [None]
  - FEELING HOT [None]
  - KIDNEY TRANSPLANT REJECTION [None]
  - LUNG CONSOLIDATION [None]
  - OEDEMA PERIPHERAL [None]
  - PNEUMONIA [None]
  - PYREXIA [None]
  - RENAL TUBULAR NECROSIS [None]
  - SEPSIS [None]
  - STAPHYLOCOCCAL INFECTION [None]
  - TENDERNESS [None]
  - THROMBOPHLEBITIS [None]
